FAERS Safety Report 6326675-8 (Version None)
Quarter: 2009Q3

REPORT INFORMATION
  Report Type: 
  Country: None (occurrence: None)
  Receive Date: 20090825
  Receipt Date: 20090812
  Transmission Date: 20100115
  Serious: Yes (Other)
  Sender: FDA-Public Use
  Company Number: US-PFIZER INC-2009255309

PATIENT
  Sex: Male
  Weight: 94.331 kg

DRUGS (8)
  1. NEURONTIN [Suspect]
     Indication: NEURALGIA
     Dosage: UNK
     Route: 048
     Dates: start: 20050301
  2. LYRICA [Suspect]
     Indication: NEURALGIA
     Dosage: UNK
     Route: 048
     Dates: start: 20050501
  3. CYMBALTA [Suspect]
     Dosage: UNK
  4. VALIUM [Concomitant]
     Dosage: UNK
  5. WELLBUTRIN [Concomitant]
     Dosage: UNK
  6. TERAZOSIN [Concomitant]
     Dosage: 10 MG, 1X/DAY
  7. AEROBID [Concomitant]
     Dosage: UNK
  8. ACETAMINOPHEN AND HYDROCODONE BITARTRATE [Concomitant]
     Dosage: 10/325MG, 1/2 TABLET DAILY

REACTIONS (1)
  - WEIGHT DECREASED [None]
